FAERS Safety Report 9123213 (Version 1)
Quarter: 2013Q1

REPORT INFORMATION
  Report Type: Spontaneous
  Country: US (occurrence: None)
  Receive Date: 20130226
  Receipt Date: 20130226
  Transmission Date: 20140127
  Serious: Yes (Other)
  Sender: FDA-Public Use
  Company Number: None

PATIENT
  Age: 62 Year
  Sex: Male
  Weight: 87.09 kg

DRUGS (1)
  1. PROPRANOLOL ER 60 MG [Suspect]
     Indication: HYPERTENSION
     Route: 048
     Dates: start: 20130223, end: 20130225

REACTIONS (3)
  - Product substitution issue [None]
  - Blood pressure increased [None]
  - No therapeutic response [None]
